FAERS Safety Report 18548664 (Version 1)
Quarter: 2020Q4

REPORT INFORMATION
  Report Type: Other
  Country: US (occurrence: US)
  Receive Date: 20201126
  Receipt Date: 20201126
  Transmission Date: 20210114
  Serious: Yes (Other)
  Sender: FDA-Public Use
  Company Number: US-ROCHE-2675796

PATIENT
  Sex: Male

DRUGS (4)
  1. OCREVUS [Suspect]
     Active Substance: OCRELIZUMAB
     Indication: RELAPSING MULTIPLE SCLEROSIS
  2. OCREVUS [Suspect]
     Active Substance: OCRELIZUMAB
     Indication: RELAPSING-REMITTING MULTIPLE SCLEROSIS
  3. OCREVUS [Suspect]
     Active Substance: OCRELIZUMAB
     Indication: RELAPSING-REMITTING MULTIPLE SCLEROSIS
     Route: 042
     Dates: start: 20190703, end: 20191204
  4. RITUXAN [Suspect]
     Active Substance: RITUXIMAB
     Indication: RELAPSING MULTIPLE SCLEROSIS
     Route: 065

REACTIONS (4)
  - Localised infection [Unknown]
  - Off label use [Unknown]
  - Osteomyelitis [Unknown]
  - Intentional product use issue [Unknown]
